FAERS Safety Report 6678030-9 (Version None)
Quarter: 2010Q2

REPORT INFORMATION
  Report Type: 
  Country: None (occurrence: None)
  Receive Date: 20100409
  Receipt Date: 20100409
  Transmission Date: 20101027
  Serious: Yes (Hospitalization)
  Sender: FDA-Public Use
  Company Number: None

PATIENT
  Age: 50 Year
  Sex: Female

DRUGS (2)
  1. HUMALOG [Suspect]
     Indication: DIABETES MELLITUS
     Dosage: 50 UNITS WITH MEALS SQ
     Route: 058
  2. LEVEMIR [Suspect]
     Indication: DIABETES MELLITUS
     Dosage: 130 UNITS BID SQ
     Route: 058

REACTIONS (2)
  - DRUG HYPERSENSITIVITY [None]
  - IMMEDIATE POST-INJECTION REACTION [None]
